FAERS Safety Report 18699685 (Version 1)
Quarter: 2021Q1

REPORT INFORMATION
  Report Type: Spontaneous
  Country: GR (occurrence: GR)
  Receive Date: 20210104
  Receipt Date: 20210104
  Transmission Date: 20210419
  Serious: Yes (Other)
  Sender: FDA-Public Use
  Company Number: GR-INCYTE CORPORATION-2020IN012974

PATIENT

DRUGS (1)
  1. JAKAVI [Suspect]
     Active Substance: RUXOLITINIB
     Indication: CHRONIC GRAFT VERSUS HOST DISEASE
     Dosage: 20 MG, QD
     Route: 065

REACTIONS (3)
  - Product use in unapproved indication [Unknown]
  - Cytomegalovirus chorioretinitis [Unknown]
  - Visual impairment [Unknown]
